FAERS Safety Report 14474267 (Version 1)
Quarter: 2018Q1

REPORT INFORMATION
  Report Type: Spontaneous
  Country: US (occurrence: US)
  Receive Date: 20180131
  Receipt Date: 20180131
  Transmission Date: 20180509
  Serious: No
  Sender: FDA-Public Use
  Company Number: None

PATIENT
  Sex: Female

DRUGS (1)
  1. IBRANCE [Suspect]
     Active Substance: PALBOCICLIB
     Indication: BREAST CANCER METASTATIC
     Route: 048
     Dates: start: 201711

REACTIONS (7)
  - Nausea [None]
  - Bone pain [None]
  - Arthralgia [None]
  - Pain in extremity [None]
  - Decreased appetite [None]
  - Diarrhoea [None]
  - Abdominal pain [None]
